FAERS Safety Report 10036176 (Version 3)
Quarter: 2014Q2

REPORT INFORMATION
  Report Type: Report from Study
  Country: US (occurrence: US)
  Receive Date: 20140325
  Receipt Date: 20140410
  Transmission Date: 20141212
  Serious: Yes (Other)
  Sender: FDA-Public Use
  Company Number: US-OTSUKA-US-2014-10403

PATIENT
  Age: 33 Year
  Sex: Female

DRUGS (10)
  1. OPC-14597 [Suspect]
     Indication: BIPOLAR I DISORDER
     Dosage: UNK
     Dates: start: 20130610
  2. HYDROCHLOROTHIAZIDE [Concomitant]
     Indication: HYPERTENSION
     Dosage: 12.5 MG MILLIGRAM(S), QD
     Route: 048
     Dates: start: 201112
  3. TRINESSA [Concomitant]
     Indication: CONTRACEPTION
     Dosage: 1 DF DOSAGE FORM, QD
     Route: 048
     Dates: start: 20130217
  4. LAMICTAL [Concomitant]
     Indication: CONVULSION
     Dosage: 100 MG MILLIGRAM(S), BID
     Route: 048
     Dates: start: 201209, end: 20130610
  5. LAMICTAL [Concomitant]
     Dosage: 100 MG MILLIGRAM(S), QD
     Route: 048
     Dates: start: 20130611, end: 20130626
  6. LAMICTAL [Concomitant]
     Dosage: 100 MG MILLIGRAM(S), QD
     Route: 048
     Dates: start: 20130701, end: 20130704
  7. LAMICTAL [Concomitant]
     Dosage: 100 MG MILLIGRAM(S), BID
     Route: 048
     Dates: start: 20130705
  8. METFORMIN [Concomitant]
     Indication: TYPE 2 DIABETES MELLITUS
     Dosage: 500 MG MILLIGRAM(S), BID
     Route: 048
     Dates: start: 20130627
  9. METFORMIN [Concomitant]
     Dosage: 500 MG MILLIGRAM(S), QD
     Route: 048
     Dates: start: 20130620, end: 20130626
  10. PSEUDOEPHEDRINE [Concomitant]
     Indication: PRODUCT USED FOR UNKNOWN INDICATION
     Dosage: UNK, PRN
     Dates: start: 20130603, end: 20130609

REACTIONS (1)
  - Convulsion [Recovered/Resolved]
